FAERS Safety Report 6719570-3 (Version None)
Quarter: 2010Q2

REPORT INFORMATION
  Report Type: 
  Country: None (occurrence: None)
  Receive Date: 20100511
  Receipt Date: 20100427
  Transmission Date: 20101027
  Serious: Yes (Hospitalization)
  Sender: FDA-Public Use
  Company Number: JP-ELI_LILLY_AND_COMPANY-JP201004007455

PATIENT
  Sex: Female
  Weight: 56 kg

DRUGS (4)
  1. EVISTA [Suspect]
     Indication: OSTEOPOROSIS
     Dosage: 60 MG, DAILY (1/D)
     Route: 048
     Dates: start: 20041201, end: 20100416
  2. ROCALTROL [Concomitant]
     Indication: HYPERPARATHYROIDISM SECONDARY
     Dosage: 0.5 MG, DAILY (1/D)
     Route: 048
     Dates: start: 20091229
  3. CALCIUM CARBONATE [Concomitant]
     Indication: HYPERPHOSPHATAEMIA
     Dosage: 500 MG, 2/D
     Route: 048
     Dates: start: 20090101
  4. ZANTAC [Concomitant]
     Indication: GASTRITIS
     Dosage: 15 MG, DAILY (1/D)
     Route: 048
     Dates: start: 20090101

REACTIONS (3)
  - DIVERTICULITIS [None]
  - MESENTERIC VEIN THROMBOSIS [None]
  - PLATELET COUNT DECREASED [None]
